FAERS Safety Report 4374333-1 (Version None)
Quarter: 2004Q2

REPORT INFORMATION
  Report Type: 
  Country: None (occurrence: None)
  Receive Date: 20040604
  Receipt Date: 20040520
  Transmission Date: 20050107
  Serious: Yes (Hospitalization)
  Sender: FDA-Public Use
  Company Number: 0400001EN0010P

PATIENT
  Age: 11 Year
  Sex: Male
  Weight: 30.9 kg

DRUGS (1)
  1. ADAGEN [Suspect]
     Indication: ENZYME SUPPLEMENTATION
     Dosage: 375 U. 2X WEEK IM
     Route: 030
     Dates: start: 20030110

REACTIONS (1)
  - ANAEMIA [None]
